FAERS Safety Report 7989393-6 (Version None)
Quarter: 2011Q4

REPORT INFORMATION
  Report Type: 
  Country: None (occurrence: None)
  Receive Date: 20111215
  Receipt Date: 20111201
  Transmission Date: 20120403
  Serious: Yes (Other)
  Sender: FDA-Public Use
  Company Number: LMI-2011-00934

PATIENT
  Age: 50 Year
  Sex: Female
  Weight: 88.905 kg

DRUGS (8)
  1. TYLENOL WITH CODEINE (CODEINE PHOSPHATE, PARACETAMOL) (TABLET) [Concomitant]
  2. ZOLOFT [Concomitant]
  3. DEFINITY [Suspect]
     Indication: STRESS ECHOCARDIOGRAM
     Dosage: 1.5 ML DEFINITY DILUTED WITH 1.5 ML NORMAL SALINE (0.5 ML, 5 IN 1 D), INTRAVENOUS BOLUS
     Route: 040
     Dates: start: 20111108, end: 20111108
  4. XANAX [Concomitant]
  5. ASPIRIN [Concomitant]
  6. POTASSIUM SUPPLEMENT (POTASSIUM) [Concomitant]
  7. LASIX [Concomitant]
  8. PROTONIX (PANTOPRAZOLE SODIUM SESQUIHYDRATE) [Concomitant]

REACTIONS (9)
  - NECK PAIN [None]
  - DYSARTHRIA [None]
  - VIITH NERVE PARALYSIS [None]
  - ANXIETY [None]
  - HEART RATE DECREASED [None]
  - BACK PAIN [None]
  - TRANSIENT ISCHAEMIC ATTACK [None]
  - HEADACHE [None]
  - BLOOD PRESSURE DIASTOLIC DECREASED [None]
